FAERS Safety Report 19837100 (Version 1)
Quarter: 2021Q3

REPORT INFORMATION
  Report Type: Spontaneous
  Country: FR (occurrence: FR)
  Receive Date: 20210916
  Receipt Date: 20210916
  Transmission Date: 20211014
  Serious: Yes (Other)
  Sender: FDA-Public Use
  Company Number: FR-SUN PHARMACEUTICAL INDUSTRIES LTD-2021RR-310929

PATIENT
  Age: 19 Year
  Sex: Female
  Weight: 50.76 kg

DRUGS (2)
  1. FLUOXETINE [Suspect]
     Active Substance: FLUOXETINE HYDROCHLORIDE
     Indication: MENTAL DISORDER
     Dosage: 20 MILLIGRAM, DAILY
     Route: 048
     Dates: start: 20210510, end: 20210615
  2. ZYMAD 80,000 IU, ORAL SOLUTION IN AMPOULE [Concomitant]
     Indication: MENTAL DISORDER
     Dosage: 1 DOSAGE FORM, MONTHLY
     Route: 048
     Dates: start: 20190628

REACTIONS (1)
  - Leukopenia [Recovered/Resolved]

NARRATIVE: CASE EVENT DATE: 20210525
